FAERS Safety Report 8991952 (Version 2)
Quarter: 2013Q2

REPORT INFORMATION
  Report Type: Spontaneous
  Country: AU (occurrence: AU)
  Receive Date: 20121231
  Receipt Date: 20130509
  Transmission Date: 20140414
  Serious: Yes (Other)
  Sender: FDA-Public Use
  Company Number: ENT 2012-0183

PATIENT
  Age: 80 Year
  Sex: Male

DRUGS (12)
  1. COMTAN (ENTACAPONE) [Suspect]
     Indication: PARKINSON^S DISEASE
     Dosage: (1 DOSAGE FORM,3 IN 1 D)
  2. LEVODOPA [Suspect]
     Indication: PARKINSON^S DISEASE
     Dosage: 5  DOSAGE FORM (1 DOSAGE FORM, 5 IN 1 D)
  3. SERTRALINE [Concomitant]
  4. RISPERIDONE [Concomitant]
  5. ASASANTIN SR [Concomitant]
  6. CALTRATE [Concomitant]
  7. NEO B12 [Concomitant]
  8. OSTELIN VITAMIN D [Concomitant]
  9. ZOLADEX IMPLANT [Concomitant]
  10. PARALGIN [Concomitant]
  11. SYSTANE [Concomitant]
  12. HYDROZOLE [Concomitant]

REACTIONS (10)
  - Delirium [Unknown]
  - Urinary tract infection [Unknown]
  - Faecal incontinence [Unknown]
  - Arthralgia [Unknown]
  - Anxiety [Unknown]
  - Aggression [Unknown]
  - Speech disorder [Unknown]
  - Emotional disorder [Unknown]
  - Abnormal behaviour [Unknown]
  - Inappropriate schedule of drug administration [Unknown]
